FAERS Safety Report 5275425-5 (Version None)
Quarter: 2007Q1

REPORT INFORMATION
  Report Type: 
  Country: None (occurrence: None)
  Receive Date: 20061213
  Receipt Date: 20040507
  Transmission Date: 20070707
  Serious: Yes (Hospitalization)
  Sender: FDA-Public Use
  Company Number: 2004UW09532

PATIENT
  Age: 75 Year
  Sex: Male

DRUGS (1)
  1. SEROQUEL [Suspect]
     Indication: AGITATION
     Dosage: 12.5 MG QD PO
     Route: 048
     Dates: start: 20031001, end: 20040504

REACTIONS (2)
  - DEEP VEIN THROMBOSIS [None]
  - DIABETES MELLITUS [None]
